FAERS Safety Report 20728302 (Version 3)
Quarter: 2022Q3

REPORT INFORMATION
  Report Type: Spontaneous
  Country: US (occurrence: US)
  Receive Date: 20220420
  Receipt Date: 20220826
  Transmission Date: 20221026
  Serious: No
  Sender: FDA-Public Use
  Company Number: US-NOVARTISTESTPH-NVSC2022US091340

PATIENT
  Sex: Male

DRUGS (1)
  1. LATANOPROST [Suspect]
     Active Substance: LATANOPROST
     Indication: Glaucoma
     Dosage: 2.5 UNK
     Route: 047

REACTIONS (3)
  - Burning sensation [Unknown]
  - Eyelid pain [Unknown]
  - Headache [Unknown]

NARRATIVE: CASE EVENT DATE: 20220401
